FAERS Safety Report 4591784-0 (Version None)
Quarter: 2005Q1

REPORT INFORMATION
  Report Type: 
  Country: None (occurrence: None)
  Receive Date: 20050222
  Receipt Date: 20050209
  Transmission Date: 20050727
  Serious: Yes (Death)
  Sender: FDA-Public Use
  Company Number: 2005027851

PATIENT
  Age: 77 Year
  Sex: Male

DRUGS (5)
  1. FLUCONAZOLE [Suspect]
     Indication: CANDIDIASIS
     Dosage: 400 MG (1 D), INTRAVENOUS
     Route: 042
     Dates: start: 20041201, end: 20041201
  2. VANCOMYCIN [Concomitant]
  3. TIENAM (CILASTATIN, IMIPENEM) [Concomitant]
  4. AMIKACIN [Concomitant]
  5. ACYCLOVIR [Concomitant]

REACTIONS (3)
  - BLOOD CULTURE POSITIVE [None]
  - CANDIDIASIS [None]
  - MULTI-ORGAN FAILURE [None]
